FAERS Safety Report 17566206 (Version 2)
Quarter: 2020Q2

REPORT INFORMATION
  Report Type: Spontaneous
  Country: US (occurrence: US)
  Receive Date: 20200320
  Receipt Date: 20200403
  Transmission Date: 20200713
  Serious: Yes (Other)
  Sender: FDA-Public Use
  Company Number: US-PFIZER INC-2019487412

PATIENT
  Age: 70 Year
  Sex: Male

DRUGS (4)
  1. CAMPTOSAR [Suspect]
     Active Substance: IRINOTECAN HYDROCHLORIDE
     Dosage: 200 MG, WEEKLY
     Route: 042
     Dates: start: 20200212
  2. CAMPTOSAR [Suspect]
     Active Substance: IRINOTECAN HYDROCHLORIDE
     Dosage: 200 MG, WEEKLY
     Route: 042
     Dates: start: 20200226
  3. CAMPTOSAR [Suspect]
     Active Substance: IRINOTECAN HYDROCHLORIDE
     Indication: SMALL CELL LUNG CANCER EXTENSIVE STAGE
     Dosage: 200 MG, UNK
  4. CAMPTOSAR [Suspect]
     Active Substance: IRINOTECAN HYDROCHLORIDE
     Dosage: 400 MG (333.3 ML/HR), ONCE
     Dates: start: 20200212, end: 20200212

REACTIONS (4)
  - Product prescribing error [Unknown]
  - Off label use [Unknown]
  - Dermatitis bullous [Unknown]
  - Product use in unapproved indication [Unknown]
